FAERS Safety Report 7002126-5 (Version None)
Quarter: 2010Q3

REPORT INFORMATION
  Report Type: 
  Country: None (occurrence: None)
  Receive Date: 20100920
  Receipt Date: 20100527
  Transmission Date: 20110219
  Serious: Yes (Other)
  Sender: FDA-Public Use
  Company Number: US-ASTRAZENECA-2008UW20889

PATIENT
  Sex: Female

DRUGS (4)
  1. SEROQUEL [Suspect]
     Route: 048
     Dates: start: 20040923, end: 20041208
  2. TRAZODONE HCL [Concomitant]
     Route: 048
     Dates: start: 20041104, end: 20041104
  3. PROZAC [Concomitant]
     Route: 048
     Dates: start: 20040909, end: 20041208
  4. MAXZIDE [Concomitant]
     Dosage: 75-50, 1 TAB PO QD
     Route: 048
     Dates: start: 20040923, end: 20041007

REACTIONS (3)
  - DIABETES MELLITUS [None]
  - KETOACIDOSIS [None]
  - PANCREATITIS [None]
